FAERS Safety Report 5389588-4 (Version None)
Quarter: 2007Q3

REPORT INFORMATION
  Report Type: 
  Country: None (occurrence: None)
  Receive Date: 20070717
  Receipt Date: 20070702
  Transmission Date: 20080115
  Serious: Yes (Other)
  Sender: FDA-Public Use
  Company Number: US-PURDUE-USA_2007_0028124

PATIENT
  Sex: Female

DRUGS (2)
  1. OXYCONTIN [Suspect]
     Indication: NEOPLASM MALIGNANT
     Dosage: 100 MG, Q6H
  2. METHADONE HCL [Suspect]
     Indication: DRUG USE FOR UNKNOWN INDICATION
     Dosage: 20 MG, BID

REACTIONS (4)
  - CONVULSION [None]
  - DISEASE PROGRESSION [None]
  - DRUG INEFFECTIVE [None]
  - NAUSEA [None]
